FAERS Safety Report 25532801 (Version 6)
Quarter: 2025Q3

REPORT INFORMATION
  Report Type: Report from Study
  Country: GB (occurrence: GB)
  Receive Date: 20250709
  Receipt Date: 20250926
  Transmission Date: 20251020
  Serious: Yes (Death, Other)
  Sender: TAKEDA
  Company Number: GB-TAKEDA-2025TUS031685

PATIENT
  Age: 83 Year
  Sex: Male

DRUGS (2)
  1. VEDOLIZUMAB [Suspect]
     Active Substance: VEDOLIZUMAB
     Indication: Colitis ulcerative
     Dosage: 108 MILLIGRAM, Q2WEEKS
     Dates: end: 202508
  2. VEDOLIZUMAB [Suspect]
     Active Substance: VEDOLIZUMAB

REACTIONS (10)
  - Death [Fatal]
  - Colitis ulcerative [Unknown]
  - Dementia [Unknown]
  - Mobility decreased [Unknown]
  - Dry skin [Unknown]
  - Weight decreased [Unknown]
  - Diarrhoea [Unknown]
  - Device malfunction [Unknown]
  - Rash [Recovered/Resolved]
  - Medication error [Unknown]
